FAERS Safety Report 10187384 (Version 1)
Quarter: 2014Q2

REPORT INFORMATION
  Report Type: Spontaneous
  Country: BR (occurrence: BR)
  Receive Date: 20140522
  Receipt Date: 20140522
  Transmission Date: 20141212
  Serious: Yes (Other)
  Sender: FDA-Public Use
  Company Number: BR-JNJFOC-20140507653

PATIENT
  Age: 31 Year
  Sex: Female

DRUGS (2)
  1. EVRA [Suspect]
     Indication: CONTRACEPTION
     Route: 062
     Dates: start: 2010
  2. PURAN T4 [Concomitant]
     Indication: HYPERTHYROIDISM
     Route: 065

REACTIONS (3)
  - Tonsillectomy [Recovered/Resolved]
  - Product quality issue [Unknown]
  - Product quality issue [Unknown]
